FAERS Safety Report 9308254 (Version 1)
Quarter: 2013Q2

REPORT INFORMATION
  Report Type: Spontaneous
  Country: ES (occurrence: ES)
  Receive Date: 20130524
  Receipt Date: 20130524
  Transmission Date: 20140414
  Serious: Yes (Other)
  Sender: FDA-Public Use
  Company Number: ES-PFIZER INC-2013153714

PATIENT
  Age: 60 Year
  Sex: Female

DRUGS (9)
  1. REVATIO [Suspect]
     Indication: PULMONARY HYPERTENSION
     Dosage: UNK
     Route: 048
     Dates: start: 20081103, end: 20081111
  2. SEGURIL [Concomitant]
  3. ALDACTONE [Concomitant]
  4. DEPRAX [Concomitant]
  5. REXER [Concomitant]
  6. CIPRALEX [Concomitant]
  7. TRANKIMAZIN RETARD [Concomitant]
  8. SINTROM [Concomitant]
  9. BOSENTAN [Concomitant]

REACTIONS (1)
  - Blindness [Not Recovered/Not Resolved]
